FAERS Safety Report 15330598 (Version 1)
Quarter: 2018Q3

REPORT INFORMATION
  Report Type: Spontaneous
  Country: FR (occurrence: FR)
  Receive Date: 20180829
  Receipt Date: 20180829
  Transmission Date: 20181010
  Serious: Yes (Hospitalization, Other)
  Sender: FDA-Public Use
  Company Number: FR-PFIZER INC-2018343262

PATIENT
  Age: 71 Year
  Sex: Male
  Weight: 76 kg

DRUGS (7)
  1. LASILIX [Suspect]
     Active Substance: FUROSEMIDE
     Indication: CARDIAC FAILURE
     Dosage: 1 DF, 1X/DAY (QD)
     Route: 048
  2. CARDENSIEL [Concomitant]
     Active Substance: BISOPROLOL FUMARATE
     Indication: CARDIAC FAILURE
     Dosage: 5 MG, QD (1 IN THE MORNING)
     Route: 048
  3. PLAVIX [Concomitant]
     Active Substance: CLOPIDOGREL BISULFATE
     Indication: ANTIPLATELET THERAPY
     Dosage: 75 MG, QD (1 IN THE MORNING)
     Route: 048
  4. TAHOR [Suspect]
     Active Substance: ATORVASTATIN CALCIUM
     Indication: HYPERCHOLESTEROLAEMIA
     Dosage: 10 OT, UNK
     Route: 048
  5. LEXOMIL [Concomitant]
     Active Substance: BROMAZEPAM
     Indication: ANXIOLYTIC THERAPY
     Dosage: 6 MG, QD (1 IN THE EVENING)
     Route: 048
  6. ENTRESTO [Suspect]
     Active Substance: SACUBITRIL\VALSARTAN
     Indication: CARDIAC FAILURE
     Dosage: 400 MG, 1X/DAY (ALSO REPORTED AS ^200 MG, BID^)
     Route: 048
     Dates: start: 20170701
  7. CORVASAL [Concomitant]
     Indication: ANGINA PECTORIS
     Dosage: 2 MG, 2X/DAY (1 IN THE EVENING AND 1/2 IN THE EVENING)
     Route: 048

REACTIONS (2)
  - Nephrolithiasis [Unknown]
  - Renal colic [Recovered/Resolved]

NARRATIVE: CASE EVENT DATE: 20180530
